FAERS Safety Report 6622484-0 (Version None)
Quarter: 2010Q1

REPORT INFORMATION
  Report Type: 
  Country: None (occurrence: None)
  Receive Date: 20100310
  Receipt Date: 20100202
  Transmission Date: 20100710
  Serious: No
  Sender: FDA-Public Use
  Company Number: US-BIOGENIDEC-2010BI003516

PATIENT
  Age: 57 Year
  Sex: Female

DRUGS (6)
  1. AVONEX [Suspect]
     Indication: MULTIPLE SCLEROSIS
     Route: 030
     Dates: start: 19971001, end: 20030101
  2. AVONEX [Suspect]
     Route: 030
     Dates: start: 20030101
  3. ULTRAM [Concomitant]
     Indication: SJOGREN'S SYNDROME
  4. ULTRAM [Concomitant]
     Indication: SYSTEMIC LUPUS ERYTHEMATOSUS
  5. VICODIN [Concomitant]
     Indication: SJOGREN'S SYNDROME
  6. VICODIN [Concomitant]
     Indication: SYSTEMIC LUPUS ERYTHEMATOSUS

REACTIONS (5)
  - ASTIGMATISM [None]
  - CATARACT [None]
  - FIBROMYALGIA [None]
  - MULTIPLE SCLEROSIS RELAPSE [None]
  - STRESS [None]
